FAERS Safety Report 7933987-0 (Version None)
Quarter: 2011Q4

REPORT INFORMATION
  Report Type: 
  Country: None (occurrence: None)
  Receive Date: 20111122
  Receipt Date: 20111110
  Transmission Date: 20120403
  Serious: Yes (Other)
  Sender: FDA-Public Use
  Company Number: HR-ROCHE-1014774

PATIENT

DRUGS (2)
  1. ALTEPLASE [Suspect]
     Indication: INTRAVENTRICULAR HAEMORRHAGE
  2. SUFENTANYL [Concomitant]
     Indication: SEDATIVE THERAPY

REACTIONS (1)
  - HYDROCEPHALUS [None]
